FAERS Safety Report 6318331-7 (Version None)
Quarter: 2009Q3

REPORT INFORMATION
  Report Type: 
  Country: None (occurrence: None)
  Receive Date: 20090821
  Receipt Date: 20090813
  Transmission Date: 20100115
  Serious: Yes (Hospitalization)
  Sender: FDA-Public Use
  Company Number: FR-PFIZER INC-2009254156

PATIENT
  Age: 83 Year

DRUGS (10)
  1. TAHOR [Suspect]
     Dosage: 40 MG, 1X/DAY
     Route: 048
  2. SINTROM [Interacting]
     Dosage: 1 DF, 1X/DAY
     Route: 048
     Dates: start: 20090412, end: 20090427
  3. KARDEGIC [Interacting]
     Dosage: 160 MG, 1X/DAY
     Route: 048
  4. CORDARONE [Interacting]
     Dosage: 1 DF, 5 DAYS PER WEEK
     Route: 048
  5. THYROXIN [Interacting]
     Dosage: 135 UG, 1X/DAY
     Route: 048
  6. EZETROL [Concomitant]
     Dosage: 10 MG, 1X/DAY
     Route: 048
  7. LANSOPRAZOLE [Concomitant]
     Dosage: 15 MG, 1X/DAY
  8. IKOREL [Concomitant]
     Dosage: 5 MG, 1X/DAY
  9. SELOKEN [Concomitant]
     Dosage: 100 MG, 3X/DAY
     Route: 048
  10. TRINITRIN [Concomitant]
     Dosage: 5 MG, 1X/DAY
     Route: 003

REACTIONS (2)
  - DRUG INTERACTION [None]
  - INTERNATIONAL NORMALISED RATIO INCREASED [None]
